FAERS Safety Report 4637885-X (Version None)
Quarter: 2005Q2

REPORT INFORMATION
  Report Type: 
  Country: None (occurrence: None)
  Receive Date: 20050328
  Receipt Date: 20050126
  Transmission Date: 20051028
  Serious: No
  Sender: FDA-Public Use
  Company Number: US_0502112364

PATIENT
  Age: 47 Year
  Sex: Female

DRUGS (4)
  1. STRATTERA [Suspect]
     Indication: ATTENTION DEFICIT/HYPERACTIVITY DISORDER
     Dosage: 36 MG DAY
     Dates: start: 20051226
  2. SAM-E (ADDEMETIONINE) [Concomitant]
  3. TRAZADONE (TRIAZODONE) [Concomitant]
  4. MULTIVITAMIN NOS (MULTIVITAMIN NOS) [Concomitant]

REACTIONS (2)
  - DIZZINESS [None]
  - EPISTAXIS [None]
